FAERS Safety Report 4443981-2 (Version None)
Quarter: 2004Q3

REPORT INFORMATION
  Report Type: 
  Country: None (occurrence: None)
  Receive Date: 20040729
  Receipt Date: 20031013
  Transmission Date: 20050211
  Serious: Yes (Hospitalization)
  Sender: FDA-Public Use
  Company Number: US-JNJFOC-20030905304

PATIENT
  Age: 52 Year
  Sex: Female
  Weight: 53 kg

DRUGS (7)
  1. RISPERIDONE [Suspect]
     Indication: SCHIZOPHRENIA
     Dosage: 1 DOSE(S), 1 IN 1 DAY, ORAL; 1 DOSE(S), 2 IN 1 DAY, ORAL
     Route: 048
     Dates: start: 20030820, end: 20030821
  2. RISPERIDONE [Suspect]
     Indication: SCHIZOPHRENIA
     Dosage: 1 DOSE(S), 1 IN 1 DAY, ORAL; 1 DOSE(S), 2 IN 1 DAY, ORAL
     Route: 048
     Dates: start: 20030822, end: 20030824
  3. DEPAKOTE ER (VALPROATE SEMISODIUM) TABLETS [Suspect]
     Indication: SCHIZOPHRENIA
     Dosage: , 2 IN 1 DAY, ORAL, 3 IN 1 DAY, ORAL
     Route: 048
     Dates: start: 20030820, end: 20030821
  4. DEPAKOTE ER (VALPROATE SEMISODIUM) TABLETS [Suspect]
     Indication: SCHIZOPHRENIA
     Dosage: , 2 IN 1 DAY, ORAL, 3 IN 1 DAY, ORAL
     Route: 048
     Dates: start: 20030822, end: 20030825
  5. FLUTICASONE PRIOPIONATE (FLUTICASONE PROPIONATE) [Concomitant]
  6. SALMETEROL XINAFOATE (SALMETEROL XINAFOATE) [Concomitant]
  7. IBUPROFEN [Concomitant]

REACTIONS (1)
  - CONVULSION [None]
